FAERS Safety Report 7272756-4 (Version None)
Quarter: 2011Q1

REPORT INFORMATION
  Report Type: 
  Country: None (occurrence: None)
  Receive Date: 20110203
  Receipt Date: 20110131
  Transmission Date: 20110831
  Serious: Yes (Other)
  Sender: FDA-Public Use
  Company Number: US-PFIZER INC-2011023787

PATIENT
  Age: 23 Year
  Sex: Female

DRUGS (2)
  1. GEODON [Suspect]
     Dosage: 60 MG, UNK
  2. LITHIUM [Concomitant]

REACTIONS (3)
  - PHARYNGEAL INFLAMMATION [None]
  - RASH [None]
  - PRURITUS [None]
